FAERS Safety Report 8157634-0 (Version None)
Quarter: 2012Q1

REPORT INFORMATION
  Report Type: 
  Country: None (occurrence: None)
  Receive Date: 20120222
  Receipt Date: 20120215
  Transmission Date: 20120608
  Serious: Yes (Congenital Anomaly)
  Sender: FDA-Public Use
  Company Number: DK-ABBOTT-11P-044-0863541-00

PATIENT
  Sex: Male

DRUGS (1)
  1. DEPAKENE [Suspect]
     Indication: MATERNAL EXPOSURE TIMING UNSPECIFIED
     Route: 064

REACTIONS (8)
  - DYSMORPHISM [None]
  - CLINODACTYLY [None]
  - FOETAL EXPOSURE DURING PREGNANCY [None]
  - CONGENITAL JAW MALFORMATION [None]
  - CONGENITAL NOSE MALFORMATION [None]
  - MENTAL RETARDATION [None]
  - FOETAL ANTICONVULSANT SYNDROME [None]
  - PROMINENT EPICANTHAL FOLDS [None]
